FAERS Safety Report 15305926 (Version 2)
Quarter: 2018Q3

REPORT INFORMATION
  Report Type: Spontaneous
  Country: CA (occurrence: CA)
  Receive Date: 20180822
  Receipt Date: 20180913
  Transmission Date: 20181010
  Serious: Yes (Other)
  Sender: FDA-Public Use
  Company Number: CA-CELLTRION INC.-2018CA021237

PATIENT

DRUGS (7)
  1. PURINETHOL [Concomitant]
     Active Substance: MERCAPTOPURINE
     Dosage: UNK
     Dates: start: 2005
  2. ASACOL [Concomitant]
     Active Substance: MESALAMINE
     Dosage: UNK
  3. EFUDEX [Concomitant]
     Active Substance: FLUOROURACIL
     Dosage: UNK
  4. INFLECTRA [Suspect]
     Active Substance: INFLIXIMAB-DYYB
     Indication: CROHN^S DISEASE
     Dosage: 272 MG, CYCLIC (0, 2, 6 WEEKS, THEN EVERY 8 WEEKS
     Route: 042
     Dates: start: 20180608
  5. INFLECTRA [Suspect]
     Active Substance: INFLIXIMAB-DYYB
     Dosage: 272 MG, CYCLIC (0, 2, 6 WEEKS, THEN EVERY 8 WEEKS
     Route: 042
     Dates: start: 20180622
  6. INFLECTRA [Suspect]
     Active Substance: INFLIXIMAB-DYYB
     Dosage: 272 MG, CYCLIC (0, 2, 6 WEEKS, THEN EVERY 8 WEEKS
     Route: 042
     Dates: start: 20180720, end: 20180720
  7. PREDNISONE. [Concomitant]
     Active Substance: PREDNISONE
     Dosage: UNK
     Dates: start: 20180408

REACTIONS (9)
  - Erythema [Recovered/Resolved]
  - Haematochezia [Not Recovered/Not Resolved]
  - Condition aggravated [Recovered/Resolved]
  - Rash pruritic [Not Recovered/Not Resolved]
  - Condition aggravated [Unknown]
  - Dermatitis allergic [Recovered/Resolved]
  - Proctalgia [Recovered/Resolved]
  - Anorectal disorder [Recovered/Resolved]
  - Chest wall cyst [Unknown]

NARRATIVE: CASE EVENT DATE: 20180622
